FAERS Safety Report 7551131-9 (Version None)
Quarter: 2011Q2

REPORT INFORMATION
  Report Type: 
  Country: None (occurrence: None)
  Receive Date: 20110616
  Receipt Date: 20110614
  Transmission Date: 20111010
  Serious: Yes (Other)
  Sender: FDA-Public Use
  Company Number: GB-TEVA-274333ISR

PATIENT
  Age: 80 Year
  Sex: Male
  Weight: 91 kg

DRUGS (2)
  1. TAMSULOSIN HCL [Suspect]
     Dates: start: 20110314
  2. TAMSULOSIN HCL [Suspect]
     Dates: start: 20110301

REACTIONS (2)
  - URINARY INCONTINENCE [None]
  - LOSS OF BLADDER SENSATION [None]
